FAERS Safety Report 6813145-3 (Version None)
Quarter: 2010Q3

REPORT INFORMATION
  Report Type: 
  Country: None (occurrence: None)
  Receive Date: 20100701
  Receipt Date: 20100623
  Transmission Date: 20110219
  Serious: Yes (Other)
  Sender: FDA-Public Use
  Company Number: JP-PFIZER INC-2010078811

PATIENT
  Age: 75 Year
  Sex: Female

DRUGS (5)
  1. LIPITOR [Suspect]
     Dosage: 5 MG DAILY
     Route: 048
     Dates: start: 20100301
  2. GASTER [Concomitant]
     Dosage: UNK
     Route: 048
  3. PROMAC /JPN/ [Concomitant]
     Dosage: UNK
     Route: 048
  4. SERTRALINE HYDROCHLORIDE [Concomitant]
     Dosage: UNK
     Route: 048
  5. FLAVITAN [Concomitant]
     Dosage: UNK
     Route: 048

REACTIONS (2)
  - CHROMATURIA [None]
  - MUSCLE SPASMS [None]
